FAERS Safety Report 9155697 (Version 1)
Quarter: 2013Q1

REPORT INFORMATION
  Report Type: Spontaneous
  Country: GB (occurrence: GB)
  Receive Date: 20130311
  Receipt Date: 20130311
  Transmission Date: 20140127
  Serious: Yes (Other)
  Sender: FDA-Public Use
  Company Number: PHHY2013GB021547

PATIENT
  Sex: Male

DRUGS (1)
  1. TAMSULOSIN [Suspect]
     Indication: PROSTATIC DISORDER
     Dosage: UNK UKN, UNK

REACTIONS (2)
  - Visual acuity reduced [Not Recovered/Not Resolved]
  - Macular fibrosis [Unknown]
